FAERS Safety Report 10186420 (Version 1)
Quarter: 2014Q2

REPORT INFORMATION
  Report Type: Spontaneous
  Country: US (occurrence: US)
  Receive Date: 20140521
  Receipt Date: 20140521
  Transmission Date: 20141212
  Serious: No
  Sender: FDA-Public Use
  Company Number: US-ASTRAZENECA-2013SE69737

PATIENT
  Age: 50 Year
  Sex: Female
  Weight: 63.5 kg

DRUGS (6)
  1. PULMICORT FLEXHALER [Suspect]
     Indication: ASTHMA
     Dosage: 180 MCG , ONE PUFF, TWO TIMES A DAY
     Route: 055
     Dates: start: 201307
  2. VENTOLIN [Concomitant]
     Indication: INHALATION THERAPY
     Route: 055
  3. PREDNISONE [Concomitant]
     Route: 048
     Dates: start: 2013
  4. IPRATROPIUM ALBUTEROL NEBULIZER [Concomitant]
     Dosage: QID
     Route: 055
  5. CEFDINIR [Concomitant]
     Dosage: 300MG
  6. UNSPECIFIED PAIN MEDS [Concomitant]

REACTIONS (3)
  - Decreased appetite [Not Recovered/Not Resolved]
  - Nausea [Not Recovered/Not Resolved]
  - Abnormal loss of weight [Not Recovered/Not Resolved]
